FAERS Safety Report 13763633 (Version 7)
Quarter: 2019Q4

REPORT INFORMATION
  Report Type: Spontaneous
  Country: KP (occurrence: KR)
  Receive Date: 20170718
  Receipt Date: 20191129
  Transmission Date: 20200122
  Serious: Yes (Other)
  Sender: FDA-Public Use
  Company Number: KR-009507513-1707KOR004251

PATIENT
  Age: 47 Year
  Sex: Female
  Weight: 54.6 kg

DRUGS (22)
  1. DICODE [Concomitant]
     Dosage: 60 MG, QD, ONCE DAILY
     Route: 048
     Dates: start: 20170509, end: 20170514
  2. MUCOSTA [Concomitant]
     Active Substance: REBAMIPIDE
     Indication: PROPHYLAXIS
     Dosage: 100 MG, TID
     Route: 048
     Dates: start: 20170421, end: 20170519
  3. DAUNOBLASTINA [Concomitant]
     Active Substance: DAUNORUBICIN
     Indication: ACUTE MYELOID LEUKAEMIA
     Dosage: 90 MG, QD
     Route: 042
     Dates: start: 20170420, end: 20170422
  4. TAZOPERAN (PIPERACILLIN\TAZOBACTAM) [Concomitant]
     Active Substance: PIPERACILLIN SODIUM\TAZOBACTAM SODIUM
     Indication: BACTERAEMIA
     Dosage: 13.5 G, TID
     Route: 042
     Dates: start: 20170415, end: 20170420
  5. NASEA [Concomitant]
     Active Substance: RAMOSETRON HYDROCHLORIDE
     Indication: PROPHYLAXIS OF NAUSEA AND VOMITING
     Dosage: 0.1 MG, QD
     Route: 048
     Dates: start: 20170421, end: 20170424
  6. ZYLORIC [Concomitant]
     Active Substance: ALLOPURINOL
     Indication: PROPHYLAXIS
     Dosage: 100 MG, TID
     Route: 048
     Dates: start: 20170418, end: 20170427
  7. PHOSTEN [Concomitant]
     Indication: HYPOPHOSPHATAEMIA
     Dosage: 20 ML, QD
     Route: 042
     Dates: start: 20170417, end: 20170515
  8. TAZOPERAN (PIPERACILLIN\TAZOBACTAM) [Concomitant]
     Active Substance: PIPERACILLIN SODIUM\TAZOBACTAM SODIUM
     Indication: INFECTION PROPHYLAXIS
     Dosage: 4.5 G, TID
     Route: 042
     Dates: start: 20170421, end: 20170428
  9. DICODE [Concomitant]
     Indication: COUGH
     Dosage: 60 MG, BID
     Route: 048
     Dates: start: 20170422, end: 20170426
  10. NASEA [Concomitant]
     Active Substance: RAMOSETRON HYDROCHLORIDE
     Indication: PROPHYLAXIS OF NAUSEA AND VOMITING
     Dosage: 0.3 MG, QD
     Route: 042
     Dates: start: 20170420, end: 20170420
  11. TAZOPERAN (PIPERACILLIN\TAZOBACTAM) [Concomitant]
     Active Substance: PIPERACILLIN SODIUM\TAZOBACTAM SODIUM
     Indication: NEUTROPENIC INFECTION
  12. ZIPAN (TRAMADOL HYDROCHLORIDE) [Concomitant]
     Indication: FEBRILE NEUTROPENIA
     Dosage: (STRENGTH: 50 MG/ML); 50 MG, QD
     Route: 042
     Dates: start: 20170415, end: 20170415
  13. LASIX [Concomitant]
     Active Substance: FUROSEMIDE
     Indication: PLEURAL EFFUSION
     Dosage: 20 MG, QD
     Route: 042
     Dates: start: 20170420, end: 20170427
  14. NOXAFIL [Suspect]
     Active Substance: POSACONAZOLE
     Indication: ANTIFUNGAL PROPHYLAXIS
     Dosage: 300 MG, BID
     Route: 048
     Dates: start: 20170423, end: 20170423
  15. NOXAFIL [Suspect]
     Active Substance: POSACONAZOLE
     Dosage: 300 MG, QD
     Route: 048
     Dates: start: 20170424, end: 20170514
  16. CYTARABINE. [Concomitant]
     Active Substance: CYTARABINE
     Indication: ACUTE MYELOID LEUKAEMIA
     Dosage: (STRENGTH: 1G/20ML); 1500 MG, QD
     Route: 042
     Dates: start: 20170420, end: 20170426
  17. DICKNOL [Concomitant]
     Active Substance: DICLOFENAC DEANOL
     Indication: FEBRILE NEUTROPENIA
     Dosage: (STRENGTH: 90MG/2ML); 90 MG WHENEVER FEVER OCCURS
     Route: 042
     Dates: start: 20170415, end: 20170420
  18. LOPERAMIDE HYDROCHLORIDE. [Concomitant]
     Active Substance: LOPERAMIDE HYDROCHLORIDE
     Indication: DIARRHOEA
     Dosage: 2 MG, TID
     Route: 048
     Dates: start: 20170422, end: 20170424
  19. CLOVIR [Concomitant]
     Indication: INFECTION PROPHYLAXIS
     Dosage: 250 MG, TID
     Route: 042
     Dates: start: 20170417, end: 20170423
  20. SMECTA [Concomitant]
     Active Substance: MONTMORILLONITE
     Indication: DIARRHOEA
     Dosage: 20 ML, QD, ONCE DAILY
     Route: 048
     Dates: start: 20170420, end: 20170421
  21. COUGH S [Concomitant]
     Indication: COUGH
     Dosage: 20 ML, BID
     Route: 048
     Dates: start: 20170419, end: 20170422
  22. RABIET [Concomitant]
     Indication: PROPHYLAXIS AGAINST GASTROINTESTINAL ULCER
     Dosage: 10 MG, QD
     Route: 048
     Dates: start: 20170421, end: 20170519

REACTIONS (4)
  - Neutropenia [Recovered/Resolved]
  - Neutropenic infection [Recovered/Resolved]
  - Rash [Recovered/Resolved]
  - Alanine aminotransferase increased [Recovered/Resolved]

NARRATIVE: CASE EVENT DATE: 20170427
